FAERS Safety Report 4314579-1 (Version None)
Quarter: 2004Q1

REPORT INFORMATION
  Report Type: 
  Country: None (occurrence: None)
  Receive Date: 20040308
  Receipt Date: 20040225
  Transmission Date: 20041129
  Serious: Yes (Death, Disabling)
  Sender: FDA-Public Use
  Company Number: 2004SE00386

PATIENT
  Age: 81 Year
  Sex: Female

DRUGS (2)
  1. NAROPIN [Suspect]
     Indication: POSTOPERATIVE ANALGESIA
     Dates: start: 20010623, end: 20010623
  2. ADRENALIN IN OIL INJ [Suspect]
     Indication: POSTOPERATIVE ANALGESIA
     Dates: start: 20010623, end: 20010623

REACTIONS (5)
  - ABDOMINAL PAIN UPPER [None]
  - EXTRADURAL HAEMATOMA [None]
  - GASTROINTESTINAL HAEMORRHAGE [None]
  - PARAPLEGIA [None]
  - SPINAL CORD COMPRESSION [None]
